FAERS Safety Report 10493813 (Version 2)
Quarter: 2014Q4

REPORT INFORMATION
  Report Type: Spontaneous
  Country: ES (occurrence: ES)
  Receive Date: 20141003
  Receipt Date: 20141118
  Transmission Date: 20150528
  Serious: Yes (Other)
  Sender: FDA-Public Use
  Company Number: ES-AMGEN-ESPSP2014073955

PATIENT
  Age: 36 Year
  Sex: Male
  Weight: 108 kg

DRUGS (2)
  1. REVOLADE [Concomitant]
     Active Substance: ELTROMBOPAG
     Dosage: UNK UNK, QD
     Route: 048
     Dates: start: 20140627, end: 20140821
  2. NPLATE [Suspect]
     Active Substance: ROMIPLOSTIM
     Indication: IMMUNE THROMBOCYTOPENIC PURPURA
     Dosage: 3 MUG/KG, QWK
     Route: 058
     Dates: start: 20140725

REACTIONS (2)
  - Drug ineffective [Unknown]
  - Platelet count abnormal [Unknown]
